FAERS Safety Report 16016719 (Version 3)
Quarter: 2019Q1

REPORT INFORMATION
  Report Type: Report from Study
  Country: ES (occurrence: ES)
  Receive Date: 20190228
  Receipt Date: 20190326
  Transmission Date: 20190418
  Serious: Yes (Hospitalization)
  Sender: FDA-Public Use
  Company Number: ES-ROCHE-2272328

PATIENT
  Age: 64 Year
  Sex: Female
  Weight: 56 kg

DRUGS (17)
  1. LYRICA [Concomitant]
     Active Substance: PREGABALIN
     Indication: PAIN
     Route: 065
     Dates: start: 20190307
  2. MEROPENEM. [Concomitant]
     Active Substance: MEROPENEM
     Indication: LEUKOCYTOSIS
     Route: 042
     Dates: start: 20190310
  3. METOCLOPRAMIDE. [Concomitant]
     Active Substance: METOCLOPRAMIDE
     Indication: PROPHYLAXIS
     Route: 042
     Dates: start: 20190307
  4. PRIMPERAN [Concomitant]
     Active Substance: METOCLOPRAMIDE HYDROCHLORIDE
     Indication: PROPHYLAXIS
     Route: 048
     Dates: start: 20190307, end: 20190307
  5. FENTANYL. [Concomitant]
     Active Substance: FENTANYL
     Route: 065
     Dates: start: 20190307, end: 20190310
  6. FENTANYL. [Concomitant]
     Active Substance: FENTANYL
     Route: 065
     Dates: start: 20190311
  7. PREDNISONE. [Concomitant]
     Active Substance: PREDNISONE
     Route: 048
  8. PREGABALINA [Concomitant]
     Active Substance: PREGABALIN
     Route: 048
  9. OMEPRAZOL [Concomitant]
     Active Substance: OMEPRAZOLE
     Indication: PROPHYLAXIS
     Route: 048
  10. ATEZOLIZUMAB. [Suspect]
     Active Substance: ATEZOLIZUMAB
     Indication: METASTATIC MALIGNANT MELANOMA
     Dosage: ON 06/FEB/2019 AT 13:30, LAST DOSE OF ATEZOLIZUMAB PRIOR TO SAE ONSET 840 MG
     Route: 042
     Dates: start: 20190122
  11. NOLOTIL [Concomitant]
     Route: 048
  12. LORAZEPAM. [Concomitant]
     Active Substance: LORAZEPAM
     Indication: PROPHYLAXIS
     Route: 048
     Dates: start: 20190311
  13. DEXKETOPROFEN [Concomitant]
     Active Substance: DEXKETOPROFEN
     Route: 048
  14. LINEZOLID. [Concomitant]
     Active Substance: LINEZOLID
     Indication: LEUKOCYTOSIS
     Route: 042
     Dates: start: 20190310
  15. PARACETAMOL [Concomitant]
     Active Substance: ACETAMINOPHEN
     Indication: PYREXIA
     Route: 048
     Dates: start: 20190307
  16. PANTOPRAZOL [Concomitant]
     Active Substance: PANTOPRAZOLE SODIUM
     Indication: PROPHYLAXIS
     Route: 048
     Dates: start: 20190310
  17. COBIMETINIB. [Suspect]
     Active Substance: COBIMETINIB
     Indication: METASTATIC MALIGNANT MELANOMA
     Dosage: ON 12/MAR/2019, LAST DOSE OF COBIMETINIB PRIOR TO SAE ONSET 60 MG
     Route: 048

REACTIONS (1)
  - Upper gastrointestinal haemorrhage [Recovered/Resolved]

NARRATIVE: CASE EVENT DATE: 20190217
